FAERS Safety Report 8785899 (Version 1)
Quarter: 2012Q4

REPORT INFORMATION
  Report Type: 
  Country: BR (occurrence: BR)
  Receive Date: 20120914
  Receipt Date: 20120914
  Transmission Date: 20130627
  Serious: Yes (Death, Hospitalization)
  Sender: FDA-Public Use
  Company Number: PHHY2012BR079653

PATIENT
  Sex: Female

DRUGS (6)
  1. TEGRETOL [Suspect]
     Indication: HEAD DISCOMFORT
     Dosage: 3 DF (200 mg) daily
  2. TEGRETOL CR [Suspect]
     Indication: ANEURYSM
     Dosage: 3 DF (200 mg) daily
  3. SIMVASTATIN [Concomitant]
     Indication: BLOOD CHOLESTEROL
     Dosage: 10 mg, daily
     Route: 048
  4. PROPRANOLOL HCL W/HYDROCHLOROTHIAZIDE [Concomitant]
     Indication: HEART RATE ABNORMAL
     Dosage: 1 DF, daily
     Route: 048
  5. OLCADIL [Concomitant]
     Indication: SLEEP DISORDER
     Dosage: 1 mg, daily
     Route: 048
  6. HIDANTAL [Concomitant]
     Indication: CONVULSION
     Dosage: 100 mg, UNK

REACTIONS (6)
  - Fall [Fatal]
  - Upper limb fracture [Fatal]
  - Urinary tract infection [Fatal]
  - Aspiration bronchial [Fatal]
  - Pneumonia [Fatal]
  - Productive cough [Fatal]
